FAERS Safety Report 9173585 (Version 1)
Quarter: 2013Q1

REPORT INFORMATION
  Report Type: Spontaneous
  Country: JP (occurrence: JP)
  Receive Date: 20130320
  Receipt Date: 20130320
  Transmission Date: 20140127
  Serious: Yes (Hospitalization)
  Sender: FDA-Public Use
  Company Number: JP-MYLANLABS-2013S1005375

PATIENT
  Age: 19 Year
  Sex: Female
  Weight: 47 kg

DRUGS (3)
  1. IBUPROFEN [Suspect]
     Indication: NASOPHARYNGITIS
     Route: 065
  2. PARACETAMOL [Suspect]
     Indication: NASOPHARYNGITIS
     Route: 065
  3. PARACETAMOL [Suspect]
     Indication: NASOPHARYNGITIS
     Route: 048

REACTIONS (2)
  - Toxic epidermal necrolysis [Recovering/Resolving]
  - Vanishing bile duct syndrome [Recovering/Resolving]
